FAERS Safety Report 18312924 (Version 1)
Quarter: 2020Q3

REPORT INFORMATION
  Report Type: Spontaneous
  Country: US (occurrence: US)
  Receive Date: 20200925
  Receipt Date: 20200925
  Transmission Date: 20201103
  Serious: Yes (Life-Threatening, Hospitalization, Other)
  Sender: FDA-Public Use
  Company Number: None

PATIENT
  Age: 70 Year
  Sex: Male
  Weight: 105 kg

DRUGS (2)
  1. OCTREOTIDE 100 MCG IV X 1 DOSE [Concomitant]
     Dates: start: 20200827, end: 20200827
  2. OCTREOTIDE. [Suspect]
     Active Substance: OCTREOTIDE
     Indication: HEPATORENAL SYNDROME
     Dosage: ?          OTHER FREQUENCY:ONCE;?
     Route: 040
     Dates: start: 20200827

REACTIONS (2)
  - Swelling [None]
  - Cardio-respiratory arrest [None]

NARRATIVE: CASE EVENT DATE: 20200827
